FAERS Safety Report 9640073 (Version 3)
Quarter: 2013Q4

REPORT INFORMATION
  Report Type: Report from Study
  Country: TH (occurrence: TH)
  Receive Date: 20131023
  Receipt Date: 20131121
  Transmission Date: 20140711
  Serious: Yes (Other)
  Sender: FDA-Public Use
  Company Number: PHHY2013TH043867

PATIENT
  Age: 76 Year
  Sex: Male

DRUGS (2)
  1. ZOMETA [Suspect]
     Indication: METASTASES TO BONE
     Dosage: 4 MG, EVERY 6 WEEKS
     Route: 041
  2. ZOMETA [Suspect]
     Dosage: 4 MG, EVERY 6 WEEKS
     Route: 041
     Dates: start: 20131002

REACTIONS (7)
  - Osteonecrosis of jaw [Not Recovered/Not Resolved]
  - Loose tooth [Not Recovered/Not Resolved]
  - Gingival ulceration [Not Recovered/Not Resolved]
  - Sensitivity of teeth [Unknown]
  - Gingival swelling [Recovering/Resolving]
  - Toothache [Not Recovered/Not Resolved]
  - Exostosis [Not Recovered/Not Resolved]
